FAERS Safety Report 14329472 (Version 10)
Quarter: 2020Q4

REPORT INFORMATION
  Report Type: Report from Study
  Country: GB (occurrence: GB)
  Receive Date: 20171227
  Receipt Date: 20201202
  Transmission Date: 20210113
  Serious: Yes (Other)
  Sender: FDA-Public Use
  Company Number: GB-BAXTER-2017BAX042665

PATIENT
  Age: 70 Year
  Sex: Male

DRUGS (5)
  1. DUODOPA [Suspect]
     Active Substance: CARBIDOPA\LEVODOPA
     Indication: PARKINSON^S DISEASE
     Dosage: 100ML CASSETTE
     Route: 050
  2. DUODOPA [Suspect]
     Active Substance: CARBIDOPA\LEVODOPA
     Dosage: 1 DOSAGE FORM QD (100 ML CASSETTE)
     Route: 065
  3. METRONIDAZOLE 500 MG / 100 ML INTRAVENOUS INFUSION [Suspect]
     Active Substance: METRONIDAZOLE
     Indication: STOMA SITE INFECTION
     Dosage: UNK UNK,UNK
     Route: 065
  4. METRONIDAZOLE 500 MG / 100 ML INTRAVENOUS INFUSION [Suspect]
     Active Substance: METRONIDAZOLE
     Route: 065
  5. DUODOPA [Suspect]
     Active Substance: CARBIDOPA\LEVODOPA
     Dosage: 100 ML CASSETTE IN A DAY, INTESTINAL GEL
     Route: 065

REACTIONS (16)
  - Stoma site discomfort [Unknown]
  - Gait disturbance [Unknown]
  - Fungal infection [Unknown]
  - Paraesthesia [Unknown]
  - Stoma site infection [Recovering/Resolving]
  - Feeling hot [Unknown]
  - Stoma site pain [Not Recovered/Not Resolved]
  - Tenderness [Unknown]
  - Wrong technique in device usage process [Unknown]
  - Stoma site haemorrhage [Unknown]
  - Stoma site discharge [Unknown]
  - Mobility decreased [Unknown]
  - Parkinson^s disease [Unknown]
  - Stoma site erythema [Not Recovered/Not Resolved]
  - Stoma site inflammation [Unknown]
  - Pain [Unknown]

NARRATIVE: CASE EVENT DATE: 20171101
